FAERS Safety Report 11598121 (Version 1)
Quarter: 2015Q3

REPORT INFORMATION
  Report Type: Spontaneous
  Country: US (occurrence: US)
  Receive Date: 20150916
  Receipt Date: 20150916
  Transmission Date: 20151125
  Serious: No
  Sender: FDA-Public Use
  Company Number: US-ELI_LILLY_AND_COMPANY-US200801000354

PATIENT
  Age: 79 Year
  Sex: Female
  Weight: 63.95 kg

DRUGS (1)
  1. FORTEO [Suspect]
     Active Substance: TERIPARATIDE
     Indication: OSTEOPOROSIS
     Dates: start: 200606

REACTIONS (8)
  - Injection site pain [Not Recovered/Not Resolved]
  - Arthralgia [Recovering/Resolving]
  - Liver function test abnormal [Unknown]
  - Pain in extremity [Recovering/Resolving]
  - Injection site bruising [Not Recovered/Not Resolved]
  - Blood calcium increased [Recovered/Resolved]
  - Tremor [Not Recovered/Not Resolved]
  - Insomnia [Recovering/Resolving]

NARRATIVE: CASE EVENT DATE: 2007
